FAERS Safety Report 22310433 (Version 4)
Quarter: 2023Q2

REPORT INFORMATION
  Report Type: Spontaneous
  Country: IT (occurrence: IT)
  Receive Date: 20230511
  Receipt Date: 20230609
  Transmission Date: 20230721
  Serious: No
  Sender: FDA-Public Use
  Company Number: IT-INCYTE CORPORATION-2023IN004872

PATIENT

DRUGS (7)
  1. PEMAZYRE [Suspect]
     Active Substance: PEMIGATINIB
     Indication: Myeloproliferative neoplasm
     Dosage: 13.5 MILLIGRAM, QD
     Route: 048
     Dates: start: 20230315, end: 20230503
  2. PEMAZYRE [Suspect]
     Active Substance: PEMIGATINIB
     Indication: Eosinophilia
     Dosage: 13.5 MILLIGRAM, QD
     Route: 048
     Dates: start: 20230315, end: 20230503
  3. PEMAZYRE [Suspect]
     Active Substance: PEMIGATINIB
     Indication: T-cell lymphoma
     Dosage: 9 MILLIGRAM
     Route: 065
     Dates: start: 20230531
  4. ESOMEPRAZOLE [Concomitant]
     Active Substance: ESOMEPRAZOLE
     Indication: Gastritis
     Dosage: 40 MILLIGRAM, QD
     Route: 065
  5. PREGABALIN [Concomitant]
     Active Substance: PREGABALIN
     Indication: Neuropathy peripheral
     Dosage: 75 MILLIGRAM, QD
     Route: 065
  6. LEVOTHYROXINE SODIUM [Concomitant]
     Active Substance: LEVOTHYROXINE SODIUM
     Indication: Hypothyroidism
     Dosage: 100 MILLIGRAM, QD
     Route: 065
  7. DIAZEPAM [Concomitant]
     Active Substance: DIAZEPAM
     Indication: Anxiety
     Dosage: OD
     Route: 065

REACTIONS (2)
  - Transaminases increased [Recovered/Resolved]
  - Off label use [Unknown]

NARRATIVE: CASE EVENT DATE: 20230315
